FAERS Safety Report 18629653 (Version 1)
Quarter: 2020Q4

REPORT INFORMATION
  Report Type: Spontaneous
  Country: CA (occurrence: CA)
  Receive Date: 20201217
  Receipt Date: 20201217
  Transmission Date: 20210114
  Serious: Yes (Hospitalization, Other)
  Sender: FDA-Public Use
  Company Number: CA-JNJFOC-20201223529

PATIENT
  Age: 45 Year
  Sex: Female

DRUGS (11)
  1. TOPAMAX [Suspect]
     Active Substance: TOPIRAMATE
     Indication: PERSISTENT POSTURAL-PERCEPTUAL DIZZINESS
  2. TOPAMAX [Suspect]
     Active Substance: TOPIRAMATE
     Indication: MIGRAINE
     Route: 048
  3. PULMICORT TURBUHALER [Concomitant]
     Active Substance: BUDESONIDE
     Indication: PRODUCT USED FOR UNKNOWN INDICATION
     Route: 065
  4. ESTRADIOL BENZOATE [Concomitant]
     Active Substance: ESTRADIOL BENZOATE
     Indication: PRODUCT USED FOR UNKNOWN INDICATION
     Route: 065
  5. TYLENOL [Concomitant]
     Active Substance: ACETAMINOPHEN
     Indication: PRODUCT USED FOR UNKNOWN INDICATION
     Route: 065
  6. ERGOCALCIFEROL. [Concomitant]
     Active Substance: ERGOCALCIFEROL
     Indication: PRODUCT USED FOR UNKNOWN INDICATION
     Route: 065
  7. CELEBREX [Concomitant]
     Active Substance: CELECOXIB
     Indication: PRODUCT USED FOR UNKNOWN INDICATION
     Route: 065
  8. GINKGO BILOBA [Concomitant]
     Active Substance: GINKGO
     Indication: PRODUCT USED FOR UNKNOWN INDICATION
     Route: 065
  9. ESOMEPRAZOLE SODIUM. [Concomitant]
     Active Substance: ESOMEPRAZOLE SODIUM
     Indication: PRODUCT USED FOR UNKNOWN INDICATION
     Route: 065
  10. RIBOFLAVIN 5^-PHOSPHATE [Concomitant]
     Indication: PRODUCT USED FOR UNKNOWN INDICATION
     Route: 065
  11. TOPAMAX [Suspect]
     Active Substance: TOPIRAMATE
     Indication: MIGRAINE WITH AURA

REACTIONS (32)
  - Blindness [Unknown]
  - Carpal tunnel syndrome [Unknown]
  - Stress [Unknown]
  - Visual impairment [Unknown]
  - Balance disorder [Unknown]
  - Hyperaesthesia [Unknown]
  - Muscular weakness [Unknown]
  - Tinnitus [Unknown]
  - Nausea [Unknown]
  - Hot flush [Unknown]
  - Finger deformity [Unknown]
  - Pain [Unknown]
  - Photophobia [Unknown]
  - Nystagmus [Unknown]
  - Menopausal symptoms [Unknown]
  - Tandem gait test abnormal [Unknown]
  - Dizziness [Unknown]
  - Migraine [Unknown]
  - Loss of consciousness [Unknown]
  - Kinesiophobia [Unknown]
  - Vertigo positional [Unknown]
  - Fall [Unknown]
  - Peripheral swelling [Unknown]
  - Occipital neuralgia [Unknown]
  - Sleep disorder [Unknown]
  - Meniere^s disease [Unknown]
  - Romberg test positive [Unknown]
  - Hyperacusis [Unknown]
  - Disorientation [Unknown]
  - Injury [Unknown]
  - Vertigo [Unknown]
  - Fatigue [Unknown]
